FAERS Safety Report 8511019-3 (Version None)
Quarter: 2012Q3

REPORT INFORMATION
  Report Type: 
  Country: None (occurrence: None)
  Receive Date: 20120703
  Receipt Date: 20120621
  Transmission Date: 20120928
  Serious: Yes (Death)
  Sender: FDA-Public Use
  Company Number: 2012060114

PATIENT
  Age: 4 Year
  Sex: Female
  Weight: 30.8446 kg

DRUGS (3)
  1. CEFZIL [Suspect]
     Indication: BRONCHITIS
     Dates: start: 20091001
  2. RYNATAN PEDIATRIC SUSPENSION (PHENYLEPHRINE TANNATE, CHLORPHENIRMAINE [Suspect]
     Indication: SINUS CONGESTION
     Dosage: 2.5/2.25 MG (EVERY 12 HOURS, AS NEEDED),ORAL
     Route: 048
     Dates: start: 20091001
  3. RYNATAN PEDIATRIC SUSPENSION (PHENYLEPHRINE TANNATE, CHLORPHENIRMAINE [Suspect]
     Indication: NASAL CONGESTION
     Dosage: 2.5/2.25 MG (EVERY 12 HOURS, AS NEEDED),ORAL
     Route: 048
     Dates: start: 20091001

REACTIONS (1)
  - RESPIRATORY DEPRESSION [None]
